FAERS Safety Report 6743600-6 (Version None)
Quarter: 2010Q2

REPORT INFORMATION
  Report Type: 
  Country: None (occurrence: None)
  Receive Date: 20100527
  Receipt Date: 20100517
  Transmission Date: 20101027
  Serious: Yes (Other)
  Sender: FDA-Public Use
  Company Number: BE-ROCHE-703908

PATIENT
  Sex: Female

DRUGS (2)
  1. HERCEPTIN [Suspect]
     Indication: BREAST CANCER
     Dosage: LAST DOSE PRIOR TO SAE: 04 MAY 2010
     Route: 042
     Dates: start: 20100303, end: 20100510
  2. PACLITAXEL [Suspect]
     Indication: BREAST CANCER
     Route: 065

REACTIONS (1)
  - ORGANISING PNEUMONIA [None]
